FAERS Safety Report 11782557 (Version 1)
Quarter: 2015Q4

REPORT INFORMATION
  Report Type: Spontaneous
  Country: JP (occurrence: JP)
  Receive Date: 20151127
  Receipt Date: 20151127
  Transmission Date: 20160305
  Serious: Yes (Other)
  Sender: FDA-Public Use
  Company Number: JP-009507513-1511JPN013028

PATIENT
  Age: 50 Year
  Sex: Male

DRUGS (1)
  1. DECADRON PHOSPHATE INJECTION 3.3MG [Suspect]
     Active Substance: DEXAMETHASONE SODIUM PHOSPHATE
     Indication: PRODUCT USED FOR UNKNOWN INDICATION
     Dosage: UNK
     Route: 042
     Dates: start: 1999, end: 200802

REACTIONS (2)
  - Osteonecrosis [Unknown]
  - Arthritis bacterial [Unknown]
